FAERS Safety Report 5260697-3 (Version None)
Quarter: 2007Q1

REPORT INFORMATION
  Report Type: 
  Country: None (occurrence: None)
  Receive Date: 20070309
  Receipt Date: 20070103
  Transmission Date: 20070707
  Serious: No
  Sender: FDA-Public Use
  Company Number: US-GLAXOSMITHKLINE-A0633098A

PATIENT
  Age: 48 Year
  Sex: Female

DRUGS (2)
  1. NICORETTE FRUIT CHILL OTC 2MG [Suspect]
     Dates: start: 20070102
  2. INSULIN [Concomitant]

REACTIONS (1)
  - BLOOD GLUCOSE INCREASED [None]
